FAERS Safety Report 7020938-9 (Version None)
Quarter: 2010Q3

REPORT INFORMATION
  Report Type: 
  Country: None (occurrence: None)
  Receive Date: 20100929
  Receipt Date: 20100927
  Transmission Date: 20110219
  Serious: Yes (Hospitalization)
  Sender: FDA-Public Use
  Company Number: FR-BRISTOL-MYERS SQUIBB COMPANY-15306749

PATIENT
  Age: 68 Year
  Sex: Male

DRUGS (6)
  1. COAPROVEL FILM-COATED TABS 300/12.5 MG [Suspect]
     Dates: end: 20100504
  2. METFORMIN HCL [Suspect]
     Route: 048
     Dates: end: 20100504
  3. DIAMICRON [Suspect]
     Dosage: DIAMICRON 30 MG
     Route: 048
     Dates: end: 20100504
  4. NEXIUM [Suspect]
     Route: 048
     Dates: end: 20100504
  5. LEVEMIR [Suspect]
     Route: 058
     Dates: end: 20100503
  6. BYETTA [Suspect]
     Route: 058
     Dates: start: 20100217, end: 20100503

REACTIONS (1)
  - BLOOD CREATININE INCREASED [None]
